FAERS Safety Report 22169612 (Version 1)
Quarter: 2023Q2

REPORT INFORMATION
  Report Type: Other
  Country: None (occurrence: US)
  Receive Date: 20230404
  Receipt Date: 20230404
  Transmission Date: 20230721
  Serious: Yes (Hospitalization)
  Sender: FDA-Public Use
  Company Number: US-Innogenix, LLC-2139856

PATIENT
  Age: 22 Year
  Sex: Male

DRUGS (1)
  1. HALOPERIDOL [Suspect]
     Active Substance: HALOPERIDOL
     Indication: Product used for unknown indication
     Route: 030

REACTIONS (2)
  - Atrioventricular block [Recovered/Resolved]
  - Unmasking of previously unidentified disease [Unknown]
